FAERS Safety Report 16317985 (Version 4)
Quarter: 2019Q2

REPORT INFORMATION
  Report Type: Report from Study
  Country: NL (occurrence: NL)
  Receive Date: 20190516
  Receipt Date: 20190531
  Transmission Date: 20190711
  Serious: Yes (Hospitalization, Other)
  Sender: FDA-Public Use
  Company Number: NL-IPSEN BIOPHARMACEUTICALS, INC.-2019-07710

PATIENT
  Age: 77 Year
  Sex: Male

DRUGS (1)
  1. SOMATULINE AUTOSOLUTION 120MG [Suspect]
     Active Substance: LANREOTIDE ACETATE
     Indication: NEUROENDOCRINE TUMOUR
     Route: 058
     Dates: start: 20150615

REACTIONS (4)
  - Medication error [Unknown]
  - Hepatobiliary disease [Recovering/Resolving]
  - Off label use [Unknown]
  - Terminal state [Unknown]

NARRATIVE: CASE EVENT DATE: 20150615
